FAERS Safety Report 6028334-8 (Version None)
Quarter: 2009Q1

REPORT INFORMATION
  Report Type: 
  Country: None (occurrence: None)
  Receive Date: 20090102
  Receipt Date: 20081217
  Transmission Date: 20090719
  Serious: Yes (Other)
  Sender: FDA-Public Use
  Company Number: 2008AL012582

PATIENT
  Age: 71 Year
  Sex: Male

DRUGS (4)
  1. LIDOCAINE HYDROCHLORIDE 2% [Suspect]
     Indication: NEURALGIA
     Dosage: 5 PCT; QD; TOP
     Route: 061
     Dates: start: 20081023, end: 20081025
  2. SOLPADOL [Concomitant]
  3. CODEINE SUL TAB [Concomitant]
  4. PARACETAMOL / SOLPADOL [Concomitant]

REACTIONS (2)
  - APPLICATION SITE ERYTHEMA [None]
  - APPLICATION SITE IRRITATION [None]
